FAERS Safety Report 25612726 (Version 2)
Quarter: 2025Q3

REPORT INFORMATION
  Report Type: Spontaneous
  Country: US (occurrence: US)
  Receive Date: 20250728
  Receipt Date: 20250801
  Transmission Date: 20251021
  Serious: No
  Sender: ROCHE
  Company Number: US-ROCHE-10000344247

PATIENT
  Sex: Female

DRUGS (3)
  1. XOLAIR [Suspect]
     Active Substance: OMALIZUMAB
     Indication: Urticaria
     Dosage: (1) 300MG PFS
     Route: 058
     Dates: end: 2024
  2. XOLAIR [Suspect]
     Active Substance: OMALIZUMAB
     Dosage: 300MG IN THE FORM OF (2) 150MG PFS, 150MG IN EACH ARM
     Route: 058
     Dates: start: 2023
  3. XOLAIR [Suspect]
     Active Substance: OMALIZUMAB
     Dosage: (1) 300MG PFS
     Route: 058
     Dates: start: 202406

REACTIONS (3)
  - Off label use [Unknown]
  - Therapy partial responder [Unknown]
  - Device issue [Unknown]

NARRATIVE: CASE EVENT DATE: 20240601
